FAERS Safety Report 9016765 (Version 1)
Quarter: 2013Q1

REPORT INFORMATION
  Report Type: Spontaneous
  Country: CH (occurrence: CH)
  Receive Date: 20130116
  Receipt Date: 20130116
  Transmission Date: 20140127
  Serious: Yes (Hospitalization, Other)
  Sender: FDA-Public Use
  Company Number: CH-009507513-1301CHE004817

PATIENT
  Age: 22 Year
  Sex: Male

DRUGS (5)
  1. REMERON [Suspect]
     Dosage: 90 MG, ONCE
     Route: 048
     Dates: start: 20121010, end: 20121010
  2. ESCITALOPRAM [Suspect]
     Dosage: 90 MG, ONCE
     Route: 048
     Dates: start: 20121010, end: 20121010
  3. QUETIAPINE FUMARATE [Suspect]
     Dosage: 300 MG, ONCE
     Route: 048
     Dates: start: 20121010, end: 20121010
  4. TOPIRAMATE [Suspect]
     Dosage: UNK, ONCE
     Route: 048
     Dates: start: 20121010, end: 20121010
  5. METHYLENEDIOXYMETHAMPHETAMINE [Suspect]
     Dosage: 1 DF, ONCE
     Dates: start: 20121010, end: 20121010

REACTIONS (5)
  - Tachycardia [Unknown]
  - Hypokalaemia [Unknown]
  - Ataxia [Unknown]
  - Suicide attempt [Recovered/Resolved]
  - Intentional overdose [Unknown]
